FAERS Safety Report 19633180 (Version 1)
Quarter: 2021Q3

REPORT INFORMATION
  Report Type: Spontaneous
  Country: US (occurrence: US)
  Receive Date: 20210730
  Receipt Date: 20210730
  Transmission Date: 20211014
  Serious: No
  Sender: FDA-Public Use
  Company Number: US-AMGEN-USASP2021116642

PATIENT
  Age: 55 Year
  Sex: Female
  Weight: 86.18 kg

DRUGS (2)
  1. HUMIRA [Concomitant]
     Active Substance: ADALIMUMAB
     Dosage: UNK
  2. ENBREL [Suspect]
     Active Substance: ETANERCEPT
     Indication: PRODUCT USED FOR UNKNOWN INDICATION
     Dosage: 11 MG, DAILY (1 TABLET BY MOUTH)
     Route: 048

REACTIONS (1)
  - Drug hypersensitivity [Unknown]
